FAERS Safety Report 8379052-2 (Version None)
Quarter: 2012Q2

REPORT INFORMATION
  Report Type: 
  Country: None (occurrence: None)
  Receive Date: 20120522
  Receipt Date: 20120522
  Transmission Date: 20120825
  Serious: Yes (Other)
  Sender: FDA-Public Use
  Company Number: None

PATIENT
  Age: 59 Year
  Sex: Male

DRUGS (2)
  1. RIBAVIRIN [Suspect]
     Dosage: RIBAVIRIN 600MG BID PO
     Route: 048
  2. PEGASYS [Suspect]
     Indication: HEPATITIS C
     Dosage: PEGASYS 180MCG QW SUBQ
     Route: 058
     Dates: start: 20120314

REACTIONS (4)
  - SYNCOPE [None]
  - IMPAIRED WORK ABILITY [None]
  - DIZZINESS [None]
  - TREATMENT NONCOMPLIANCE [None]
